FAERS Safety Report 9162962 (Version 2)
Quarter: 2013Q2

REPORT INFORMATION
  Report Type: Spontaneous
  Country: US (occurrence: None)
  Receive Date: 20130222
  Receipt Date: 20130405
  Transmission Date: 20140414
  Serious: Yes (Hospitalization)
  Sender: FDA-Public Use
  Company Number: 2013-0269

PATIENT
  Age: 52 Year
  Sex: Male

DRUGS (3)
  1. KYPROLIS [Suspect]
     Indication: PLASMA CELL MYELOMA
     Dosage: (2 IN 1 WK)
     Route: 042
     Dates: start: 201211
  2. CYTOXAN (CYCLOPHOSPHAMIDE) [Concomitant]
  3. DEXAMETHASONE (DEXAMETHASONE) (DEXAMETHASONE) [Concomitant]

REACTIONS (3)
  - Deep vein thrombosis [None]
  - Influenza [None]
  - Pleuritic pain [None]
